FAERS Safety Report 22352851 (Version 1)
Quarter: 2023Q2

REPORT INFORMATION
  Report Type: Spontaneous
  Country: US (occurrence: US)
  Receive Date: 20230523
  Receipt Date: 20230523
  Transmission Date: 20230721
  Serious: Yes (Hospitalization)
  Sender: FDA-Public Use
  Company Number: US-BRISTOL-MYERS SQUIBB COMPANY-2023-071083

PATIENT
  Age: 81 Year
  Sex: Female

DRUGS (1)
  1. REVLIMID [Suspect]
     Active Substance: LENALIDOMIDE
     Indication: Plasma cell myeloma
     Dosage: ONE TIME PER DAY ON 1-21 OFF DAYS 22 TO 28,EVERY CYCLE
     Route: 048
     Dates: start: 20230502

REACTIONS (2)
  - Asthenia [Unknown]
  - Blood calcium increased [Unknown]
